FAERS Safety Report 8533314-4 (Version None)
Quarter: 2012Q3

REPORT INFORMATION
  Report Type: 
  Country: None (occurrence: None)
  Receive Date: 20120717
  Receipt Date: 20120717
  Transmission Date: 20120928
  Serious: Yes (Other)
  Sender: FDA-Public Use
  Company Number: None

PATIENT
  Sex: Female

DRUGS (3)
  1. LIPITOR [Concomitant]
  2. BONIVA [Suspect]
     Indication: OSTEOPOROSIS
     Dosage: 150MG ONCE A MONTH PO
     Route: 048
     Dates: start: 20090101, end: 20120601
  3. MEDFORMIN [Concomitant]

REACTIONS (2)
  - SLEEP DISORDER [None]
  - PAIN IN JAW [None]
